FAERS Safety Report 11065831 (Version 2)
Quarter: 2015Q2

REPORT INFORMATION
  Report Type: Spontaneous
  Country: US (occurrence: US)
  Receive Date: 20150425
  Receipt Date: 20150525
  Transmission Date: 20150821
  Serious: Yes (Hospitalization, Other)
  Sender: FDA-Public Use
  Company Number: US-JNJFOC-20100801700

PATIENT
  Age: 62 Year
  Sex: Male

DRUGS (6)
  1. CIPROFLOXACIN. [Suspect]
     Active Substance: CIPROFLOXACIN
     Indication: URINARY TRACT INFECTION
     Route: 048
     Dates: start: 20080315, end: 20080512
  2. LEVAQUIN [Suspect]
     Active Substance: LEVOFLOXACIN
     Indication: BENIGN PROSTATIC HYPERPLASIA
     Route: 048
     Dates: start: 20080315, end: 20080512
  3. LEVAQUIN [Suspect]
     Active Substance: LEVOFLOXACIN
     Indication: URINARY TRACT OBSTRUCTION
     Route: 048
     Dates: start: 20080315, end: 20080512
  4. LEVAQUIN [Suspect]
     Active Substance: LEVOFLOXACIN
     Indication: URINARY TRACT INFECTION
     Route: 048
     Dates: start: 20080315, end: 20080512
  5. CIPROFLOXACIN. [Suspect]
     Active Substance: CIPROFLOXACIN
     Indication: URINARY TRACT OBSTRUCTION
     Route: 048
     Dates: start: 20080315, end: 20080512
  6. CIPROFLOXACIN. [Suspect]
     Active Substance: CIPROFLOXACIN
     Indication: BENIGN PROSTATIC HYPERPLASIA
     Route: 048
     Dates: start: 20080315, end: 20080512

REACTIONS (2)
  - Tendon disorder [Unknown]
  - Tendon rupture [Recovering/Resolving]

NARRATIVE: CASE EVENT DATE: 20080728
